FAERS Safety Report 7532931-8 (Version None)
Quarter: 2011Q2

REPORT INFORMATION
  Report Type: 
  Country: None (occurrence: None)
  Receive Date: 20110608
  Receipt Date: 20110527
  Transmission Date: 20111010
  Serious: Yes (Hospitalization)
  Sender: FDA-Public Use
  Company Number: US-CELGENEUS-163-AB007-11053813

PATIENT
  Sex: Male
  Weight: 56.8 kg

DRUGS (15)
  1. FLUID [Concomitant]
     Route: 051
     Dates: start: 20110501
  2. K-DUR [Concomitant]
     Indication: SUPPLEMENTATION THERAPY
     Route: 048
     Dates: start: 20110427
  3. ABRAXANE [Suspect]
     Dosage: 125 MILLIGRAM/SQ. METER
     Route: 051
     Dates: end: 20110511
  4. OXYCODONE HCL [Concomitant]
     Indication: PAIN
     Dosage: 1-2
     Route: 048
     Dates: start: 20100101
  5. GEMCITABINE [Suspect]
     Dosage: 1000 MILLIGRAM/SQ. METER
     Route: 065
     Dates: start: 20110202
  6. SIMVASTATIN [Concomitant]
     Dosage: 40 MILLIGRAM
     Route: 048
     Dates: start: 20070101
  7. COMPAZINE [Concomitant]
     Indication: NAUSEA
     Dosage: 10 MILLIGRAM
     Route: 048
     Dates: start: 20110201
  8. NEUPOGEN [Concomitant]
     Indication: NEUTROPENIA
     Dosage: 480 MICROGRAM
     Route: 058
     Dates: start: 20110302
  9. GEMCITABINE [Suspect]
     Dosage: 600 MILLIGRAM/SQ. METER
     Route: 065
     Dates: end: 20110511
  10. METOPROLOL [Concomitant]
     Indication: HYPERTENSION
     Dosage: 100 MILLIGRAM
     Route: 048
     Dates: start: 20070101
  11. ABRAXANE [Suspect]
     Dosage: 125 MILLIGRAM/SQ. METER
     Route: 065
     Dates: start: 20110202
  12. METFORMIN HCL [Concomitant]
     Indication: DIABETES MELLITUS
     Dosage: 500 MILLIGRAM
     Route: 048
     Dates: start: 20101001
  13. FOSAMAX [Concomitant]
     Indication: OSTEOPOROSIS
     Dosage: 5 MILLIGRAM
     Route: 048
     Dates: start: 20070101
  14. MORPHINE [Concomitant]
     Indication: PAIN
     Dosage: 15 MILLIGRAM
     Route: 048
     Dates: start: 20100101
  15. LASIX [Concomitant]
     Dosage: 20 MILLIGRAM
     Route: 048
     Dates: start: 20110427

REACTIONS (3)
  - DYSPNOEA [None]
  - MALAISE [None]
  - DIZZINESS [None]
